FAERS Safety Report 8059439-8 (Version None)
Quarter: 2012Q1

REPORT INFORMATION
  Report Type: 
  Country: None (occurrence: None)
  Receive Date: 20120120
  Receipt Date: 20120112
  Transmission Date: 20120608
  Serious: Yes (Hospitalization)
  Sender: FDA-Public Use
  Company Number: US-NOVOPROD-343062

PATIENT
  Age: 45 Year
  Sex: Female
  Weight: 54.422 kg

DRUGS (2)
  1. LEVEMIR [Suspect]
     Indication: TYPE 1 DIABETES MELLITUS
     Dosage: 23 U, QD AT NIGHT
     Route: 058
     Dates: start: 20070101, end: 20110801
  2. HUMALOG [Suspect]
     Indication: TYPE 1 DIABETES MELLITUS
     Dosage: SLIDING SCALE, TID
     Route: 058
     Dates: start: 20070101

REACTIONS (2)
  - ABSCESS [None]
  - DIABETES MELLITUS INADEQUATE CONTROL [None]
